FAERS Safety Report 6745800-8 (Version None)
Quarter: 2010Q2

REPORT INFORMATION
  Report Type: 
  Country: None (occurrence: None)
  Receive Date: 20100528
  Receipt Date: 20100518
  Transmission Date: 20101027
  Serious: Yes (Hospitalization)
  Sender: FDA-Public Use
  Company Number: JP-NOVOPROD-304892

PATIENT
  Age: 51 Year
  Sex: Male
  Weight: 76 kg

DRUGS (14)
  1. NOVORAPID 30 MIX CHU FLEXPEN [Suspect]
     Indication: TYPE 1 DIABETES MELLITUS
     Dosage: 18-26 IU
     Route: 058
     Dates: start: 20081201, end: 20091102
  2. NOVORAPID CHU FLEXPEN [Suspect]
     Indication: TYPE 1 DIABETES MELLITUS
     Dosage: 4-10 IU
     Route: 058
     Dates: start: 20090728
  3. HUMULIN R [Concomitant]
     Indication: DRUG USE FOR UNKNOWN INDICATION
     Dosage: 4-16
     Dates: start: 20090608
  4. HUMALOG [Concomitant]
     Indication: DRUG USE FOR UNKNOWN INDICATION
     Dosage: 6-8
     Route: 058
     Dates: start: 20091102
  5. HUMULIN N [Concomitant]
     Indication: DRUG USE FOR UNKNOWN INDICATION
     Dosage: 5 U, QD
     Route: 058
     Dates: start: 20090806
  6. HUMALOG MIX                        /01293501/ [Concomitant]
     Indication: DRUG USE FOR UNKNOWN INDICATION
     Dosage: 24-33
     Route: 058
     Dates: start: 20091102
  7. ADALAT CC [Concomitant]
     Indication: HYPERTENSION
     Dosage: 80 MG, QD
     Route: 048
  8. BASEN [Concomitant]
     Indication: LATENT AUTOIMMUNE DIABETES IN ADULTS
     Dosage: 0.9 MG, QD
     Route: 048
  9. CALCIUM CARBONATE [Concomitant]
     Indication: RENAL FAILURE CHRONIC
     Dosage: 1500 MG, QD
     Route: 048
  10. FUROSEMIDE [Concomitant]
     Indication: RENAL FAILURE CHRONIC
     Dosage: 80 MG, QD
     Route: 048
  11. TAKEPRON [Concomitant]
     Indication: REFLUX OESOPHAGITIS
     Dosage: 30 MG, QD
     Route: 048
  12. ALFAROL [Concomitant]
     Indication: RENAL FAILURE CHRONIC
     Dosage: 0.5 UNK, QD
     Route: 048
  13. ARTIST [Concomitant]
     Indication: HYPERTENSION
     Dosage: 15 MG, QD
     Route: 048
  14. CANDESARTAN CILEXETIL [Concomitant]
     Indication: HYPERTENSION
     Dosage: 8 MG, QD
     Route: 048

REACTIONS (5)
  - ANTI-INSULIN ANTIBODY POSITIVE [None]
  - DIABETIC KETOACIDOSIS [None]
  - HYPERGLYCAEMIA [None]
  - HYPOGLYCAEMIA [None]
  - INFECTION [None]
